FAERS Safety Report 24000577 (Version 1)
Quarter: 2024Q2

REPORT INFORMATION
  Report Type: Report from Study
  Country: US (occurrence: US)
  Receive Date: 20240621
  Receipt Date: 20240621
  Transmission Date: 20240717
  Serious: No
  Sender: FDA-Public Use
  Company Number: US-BIOVITRUM-2024-US-008250

PATIENT
  Age: 57 Year
  Sex: Male

DRUGS (2)
  1. DOPTELET [Suspect]
     Active Substance: AVATROMBOPAG MALEATE
     Indication: Immune thrombocytopenia
     Dosage: DAILY
     Route: 048
     Dates: start: 20240515
  2. DOPTELET [Suspect]
     Active Substance: AVATROMBOPAG MALEATE
     Dosage: TWICE DAILY (BID)
     Route: 048
     Dates: start: 20240515

REACTIONS (6)
  - Vision blurred [Unknown]
  - Weight increased [Unknown]
  - Platelet count abnormal [Recovering/Resolving]
  - Fatigue [Unknown]
  - Thirst [Unknown]
  - Dry mouth [Unknown]
